FAERS Safety Report 5649681-5 (Version None)
Quarter: 2008Q1

REPORT INFORMATION
  Report Type: 
  Country: None (occurrence: None)
  Receive Date: 20080304
  Receipt Date: 20080208
  Transmission Date: 20080703
  Serious: No
  Sender: FDA-Public Use
  Company Number: US-BOEHRINGER INGELHEIM GMBH, GERMANY-2007-BP-24355BP

PATIENT
  Age: 66 Year
  Sex: Female

DRUGS (1)
  1. SPIRIVA [Suspect]

REACTIONS (2)
  - DRUG INEFFECTIVE [None]
  - INCREASED UPPER AIRWAY SECRETION [None]
